FAERS Safety Report 10664027 (Version 1)
Quarter: 2014Q4

REPORT INFORMATION
  Report Type: Spontaneous
  Country: US (occurrence: None)
  Receive Date: 20141218
  Receipt Date: 20141218
  Transmission Date: 20150529
  Serious: Yes (Death)
  Sender: FDA-Public Use
  Company Number: None

PATIENT
  Age: 42 Year
  Sex: Male

DRUGS (15)
  1. FOSCARNET [Concomitant]
     Active Substance: FOSCARNET
  2. SULFAMETHOXAZOLE-TRIMETHOPRIM (SMZ) [Concomitant]
     Active Substance: SULFAMETHOXAZOLE\TRIMETHOPRIM
  3. CETIRIZINE [Concomitant]
     Active Substance: CETIRIZINE HYDROCHLORIDE
  4. PHOS-NAK [Concomitant]
  5. LEVOFLOXACIN. [Concomitant]
     Active Substance: LEVOFLOXACIN
  6. SULFAMETHOXAZOLE-TRIMETHOPRIM (SMZ) [Concomitant]
     Active Substance: SULFAMETHOXAZOLE\TRIMETHOPRIM
  7. DRONABINOL. [Concomitant]
     Active Substance: DRONABINOL
  8. BENZONATATE. [Concomitant]
     Active Substance: BENZONATATE
  9. PREDNISONE. [Concomitant]
     Active Substance: PREDNISONE
  10. AFINITOR [Suspect]
     Active Substance: EVEROLIMUS
     Indication: NEOPLASM MALIGNANT
     Route: 048
     Dates: start: 20141031, end: 20141215
  11. VORICONAZOLE. [Concomitant]
     Active Substance: VORICONAZOLE
  12. K-PHOS [Concomitant]
     Active Substance: POTASSIUM PHOSPHATE, MONOBASIC
  13. MAGNESIUM [Concomitant]
     Active Substance: MAGNESIUM
  14. CEROVITE [Concomitant]
  15. ALLOPURINOL. [Concomitant]
     Active Substance: ALLOPURINOL

REACTIONS (1)
  - Lung infection [None]

NARRATIVE: CASE EVENT DATE: 20141215
